FAERS Safety Report 13974451 (Version 1)
Quarter: 2017Q3

REPORT INFORMATION
  Report Type: Spontaneous
  Country: US (occurrence: US)
  Receive Date: 20170915
  Receipt Date: 20170915
  Transmission Date: 20171128
  Serious: Yes (Other)
  Sender: FDA-Public Use
  Company Number: US-JNJFOC-20170912389

PATIENT

DRUGS (1)
  1. XARELTO [Suspect]
     Active Substance: RIVAROXABAN
     Indication: PRODUCT USED FOR UNKNOWN INDICATION
     Route: 048
     Dates: start: 20121119, end: 20140228

REACTIONS (4)
  - Abdominal wall haematoma [Unknown]
  - Haemarthrosis [Unknown]
  - Necrosis [Unknown]
  - Impaired healing [Unknown]

NARRATIVE: CASE EVENT DATE: 20140211
